FAERS Safety Report 4579264-X (Version None)
Quarter: 2005Q1

REPORT INFORMATION
  Report Type: 
  Country: None (occurrence: None)
  Receive Date: 20050209
  Receipt Date: 20050209
  Transmission Date: 20050727
  Serious: No
  Sender: FDA-Public Use
  Company Number: None

PATIENT
  Age: 15 Year
  Sex: Female
  Weight: 73.9363 kg

DRUGS (10)
  1. KEPPRA [Suspect]
     Indication: BIPOLAR I DISORDER
     Dosage: 250 MG PO BEDTIME
     Route: 048
     Dates: start: 20050114
  2. STRATTERA [Concomitant]
  3. TOPAMAX [Concomitant]
  4. .. [Concomitant]
  5. TRILEPTAL [Concomitant]
  6. CLOZARIL [Concomitant]
  7. SEROQUAL [Concomitant]
  8. ESKALITH [Concomitant]
  9. ABILIFY [Concomitant]
  10. LAMICTAL [Concomitant]

REACTIONS (5)
  - AGITATION [None]
  - DISTRACTIBILITY [None]
  - IMPULSIVE BEHAVIOUR [None]
  - MANIA [None]
  - PRESSURE OF SPEECH [None]
